FAERS Safety Report 6071160-4 (Version None)
Quarter: 2009Q1

REPORT INFORMATION
  Report Type: 
  Country: None (occurrence: None)
  Receive Date: 20090209
  Receipt Date: 20090128
  Transmission Date: 20090719
  Serious: Yes (Life-Threatening, Hospitalization, Other)
  Sender: FDA-Public Use
  Company Number: US-ELI_LILLY_AND_COMPANY-US200810006521

PATIENT
  Sex: Female

DRUGS (10)
  1. FORTEO [Suspect]
     Indication: OSTEOPOROSIS
     Dosage: 20 UG, DAILY (1/D)
     Dates: start: 20080621, end: 20081026
  2. COUMADIN [Concomitant]
     Indication: CARDIAC DISORDER
  3. POTASSIUM CHLORIDE [Concomitant]
     Indication: CARDIAC DISORDER
  4. LIPITOR [Concomitant]
     Indication: BLOOD CHOLESTEROL
  5. NORTRIPTYLINE HCL [Concomitant]
  6. DURAGESIC-100 [Concomitant]
  7. CENTRUM SILVER [Concomitant]
  8. COENZYME Q10 [Concomitant]
  9. STOOL SOFTENER [Concomitant]
  10. LORTAB [Concomitant]

REACTIONS (11)
  - AORTIC STENOSIS [None]
  - ASTHENIA [None]
  - ATRIOVENTRICULAR BLOCK COMPLETE [None]
  - CARDIAC ARREST [None]
  - HYPOTENSION [None]
  - MITRAL VALVE INCOMPETENCE [None]
  - MYOCARDIAL INFARCTION [None]
  - NEPHROLITHIASIS [None]
  - PROCEDURAL PAIN [None]
  - VENTRICULAR FIBRILLATION [None]
  - VENTRICULAR TACHYCARDIA [None]
